FAERS Safety Report 7786047-6 (Version None)
Quarter: 2011Q3

REPORT INFORMATION
  Report Type: 
  Country: None (occurrence: None)
  Receive Date: 20110929
  Receipt Date: 20110915
  Transmission Date: 20111222
  Serious: Yes (Hospitalization, Other)
  Sender: FDA-Public Use
  Company Number: US-ELI_LILLY_AND_COMPANY-US201004000743

PATIENT
  Sex: Female
  Weight: 40.8 kg

DRUGS (15)
  1. METFORMIN HCL [Concomitant]
  2. SEROQUEL [Concomitant]
  3. VITAMIN D [Concomitant]
  4. FORTEO [Suspect]
     Indication: OSTEOPOROSIS
     Dosage: 20 UG, DAILY (1/D)
     Route: 058
     Dates: start: 20100401
  5. PREDNISONE [Concomitant]
  6. MERCAPTOPURINE [Concomitant]
  7. PHENYTOIN [Concomitant]
  8. REMICADE [Concomitant]
     Indication: COLITIS
     Dates: start: 20091201
  9. FOLIC ACID [Concomitant]
  10. DILANTIN [Concomitant]
  11. FUROSEMIDE [Concomitant]
  12. PRISTIQ [Concomitant]
  13. FORTEO [Suspect]
     Dosage: 20 UG, DAILY (1/D)
     Route: 058
     Dates: start: 20101205
  14. LOVASTATIN [Concomitant]
  15. ASPIRIN [Concomitant]

REACTIONS (5)
  - HYPOPHAGIA [None]
  - HOSPITALISATION [None]
  - ULCER [None]
  - CROHN'S DISEASE [None]
  - NAUSEA [None]
